FAERS Safety Report 6198352-8 (Version None)
Quarter: 2009Q2

REPORT INFORMATION
  Report Type: 
  Country: None (occurrence: None)
  Receive Date: 20090521
  Receipt Date: 20090510
  Transmission Date: 20091009
  Serious: Yes (Hospitalization)
  Sender: FDA-Public Use
  Company Number: US-AVENTIS-200914058US

PATIENT
  Sex: Female

DRUGS (4)
  1. LANTUS [Suspect]
     Dosage: DOSE: 25 UNITS OR 25 UNITS AT NIGHT AND 15 UNITS IN THE MORNING
     Route: 058
     Dates: start: 20090401
  2. LANTUS [Suspect]
     Dosage: DOSE: 40 UNITS IN THE EVENING
     Route: 058
     Dates: start: 20090301, end: 20090101
  3. LANTUS [Suspect]
     Dosage: DOSE: UNK
     Route: 058
     Dates: start: 20070101, end: 20090301
  4. HUMALOG [Concomitant]
     Dosage: DOSE: SLIDING SCALE
     Dates: start: 20090301, end: 20090101

REACTIONS (4)
  - ASTHENIA [None]
  - BLOOD GLUCOSE DECREASED [None]
  - HYPERHIDROSIS [None]
  - URINARY TRACT INFECTION [None]
